FAERS Safety Report 17671331 (Version 3)
Quarter: 2020Q2

REPORT INFORMATION
  Report Type: Spontaneous
  Country: DE (occurrence: DE)
  Receive Date: 20200415
  Receipt Date: 20200512
  Transmission Date: 20200713
  Serious: Yes (Life-Threatening, Hospitalization, Other)
  Sender: FDA-Public Use
  Company Number: DE-MYLANLABS-2020M1037942

PATIENT
  Age: 51 Year
  Sex: Female
  Weight: 73.6 kg

DRUGS (3)
  1. FLUOROURACIL. [Suspect]
     Active Substance: FLUOROURACIL
     Indication: BREAST CANCER
     Dosage: 2600 MILLIGRAM/SQ. METER
     Route: 042
     Dates: start: 20200224, end: 20200224
  2. BRIVUDINE [Interacting]
     Active Substance: BRIVUDINE
     Indication: HERPES ZOSTER
     Dosage: 125 MILLIGRAM, QD
     Route: 048
     Dates: start: 20200210, end: 20200217
  3. TRAZODON [Concomitant]
     Active Substance: TRAZODONE HYDROCHLORIDE
     Indication: DEPRESSION
     Dosage: 0,5
     Route: 048

REACTIONS (6)
  - Alopecia [Unknown]
  - Drug interaction [Recovered/Resolved]
  - Pancytopenia [Recovering/Resolving]
  - Febrile neutropenia [Unknown]
  - Haematotoxicity [Unknown]
  - Mucosal inflammation [Recovering/Resolving]

NARRATIVE: CASE EVENT DATE: 20200224
